FAERS Safety Report 24112122 (Version 1)
Quarter: 2024Q3

REPORT INFORMATION
  Report Type: Report from Study
  Country: US (occurrence: US)
  Receive Date: 20240719
  Receipt Date: 20240719
  Transmission Date: 20241016
  Serious: Yes (Other)
  Sender: JAZZ
  Company Number: US-JAZZ-2021-US-017805

PATIENT
  Age: 69 Year
  Sex: Male

DRUGS (39)
  1. XYREM [Suspect]
     Active Substance: SODIUM OXYBATE
     Indication: Narcolepsy
     Dosage: 2.25 GRAM, BID
     Route: 048
     Dates: start: 200811, end: 200902
  2. XYREM [Suspect]
     Active Substance: SODIUM OXYBATE
     Indication: Cataplexy
     Dosage: 2.25 GRAM, BID
     Route: 048
     Dates: start: 202011
  3. XYREM [Suspect]
     Active Substance: SODIUM OXYBATE
     Indication: Somnolence
     Dosage: 3G FOR THE FIRST DOSE AND 2.25G FOR THE SECOND DOSE
  4. XYREM [Suspect]
     Active Substance: SODIUM OXYBATE
     Dosage: 3.5 GRAM AT BEDTIME AND 3 GRAM FOUR HOURS LATER
  5. PRALUENT [Suspect]
     Active Substance: ALIROCUMAB
     Indication: Product used for unknown indication
     Dosage: UNK
  6. AMBIEN [Suspect]
     Active Substance: ZOLPIDEM TARTRATE
     Indication: Product used for unknown indication
     Dosage: UNK
  7. OXYBUTYNIN [Concomitant]
     Active Substance: OXYBUTYNIN\OXYBUTYNIN CHLORIDE
     Dosage: UNK
     Dates: start: 20230105
  8. SKYRIZI [Concomitant]
     Active Substance: RISANKIZUMAB-RZAA
     Dosage: PEN
     Dates: start: 20230302
  9. ALIROCUMAB [Concomitant]
     Active Substance: ALIROCUMAB
  10. APIXABAN [Concomitant]
     Active Substance: APIXABAN
  11. ARMODAFINIL [Concomitant]
     Active Substance: ARMODAFINIL
  12. ASPIRIN [Concomitant]
     Active Substance: ASPIRIN
  13. ATORVASTATIN [Concomitant]
     Active Substance: ATORVASTATIN
  14. CHOLECALCIFEROL [Concomitant]
     Active Substance: CHOLECALCIFEROL
  15. FAMOTIDINE [Concomitant]
     Active Substance: FAMOTIDINE
  16. FLUOXETINE HYDROCHLORIDE [Concomitant]
     Active Substance: FLUOXETINE HYDROCHLORIDE
  17. NITROGLYCERIN [Concomitant]
     Active Substance: NITROGLYCERIN
  18. PANTOPRAZOLE SODIUM ANHYDROUS [Concomitant]
     Active Substance: PANTOPRAZOLE SODIUM ANHYDROUS
  19. DEXTROMETHORPHAN HYDROBROMIDE\PROMETHAZINE HYDROCHLORIDE [Concomitant]
     Active Substance: DEXTROMETHORPHAN HYDROBROMIDE\PROMETHAZINE HYDROCHLORIDE
  20. VESICARE [Concomitant]
     Active Substance: SOLIFENACIN SUCCINATE
  21. TAMSULOSIN HYDROCHLORIDE [Concomitant]
     Active Substance: TAMSULOSIN HYDROCHLORIDE
     Dosage: UNK
  22. TAMSULOSIN HYDROCHLORIDE [Concomitant]
     Active Substance: TAMSULOSIN HYDROCHLORIDE
     Dosage: UNK
  23. GABAPENTIN [Concomitant]
     Active Substance: GABAPENTIN
     Dosage: UNK
     Dates: start: 20240503
  24. ACETAMINOPHEN\HYDROCODONE [Concomitant]
     Active Substance: ACETAMINOPHEN\HYDROCODONE
     Dosage: 7.5-325
     Dates: start: 20240419
  25. ELIQUIS [Concomitant]
     Active Substance: APIXABAN
  26. NUVIGIL [Concomitant]
     Active Substance: ARMODAFINIL
  27. ECOTRIN [Concomitant]
     Active Substance: ASPIRIN
  28. LIPITOR [Concomitant]
     Active Substance: ATORVASTATIN CALCIUM
  29. REXULTI [Concomitant]
     Active Substance: BREXPIPRAZOLE
  30. VITAMIN D3 [Concomitant]
     Active Substance: CHOLECALCIFEROL
  31. PEPCID [Concomitant]
     Active Substance: FAMOTIDINE
     Dosage: TAKE ONE TABLET BY MOUTH
  32. PROZAC [Concomitant]
     Active Substance: FLUOXETINE HYDROCHLORIDE
  33. AVAPRO [Concomitant]
     Active Substance: IRBESARTAN
  34. MEDROL [Concomitant]
     Active Substance: METHYLPREDNISOLONE
  35. NITROSTAT [Concomitant]
     Active Substance: NITROGLYCERIN
  36. OMEPRAZOLE [Concomitant]
     Active Substance: OMEPRAZOLE
  37. LYRICA [Concomitant]
     Active Substance: PREGABALIN
  38. PROMETHAZINE DM [Concomitant]
     Active Substance: DEXTROMETHORPHAN HYDROBROMIDE\PROMETHAZINE HYDROCHLORIDE
     Dosage: TAKE 5 ML BY MOUTH
  39. FLOMAX [Concomitant]
     Active Substance: TAMSULOSIN HYDROCHLORIDE

REACTIONS (7)
  - Spinal decompression [Unknown]
  - Blood cholesterol decreased [Unknown]
  - Nightmare [Unknown]
  - Arthritis [Unknown]
  - Back pain [Unknown]
  - Treatment noncompliance [Unknown]
  - Product administration interrupted [Unknown]

NARRATIVE: CASE EVENT DATE: 20240710
